FAERS Safety Report 10744660 (Version 1)
Quarter: 2015Q1

REPORT INFORMATION
  Report Type: Spontaneous
  Country: US (occurrence: None)
  Receive Date: 20150126
  Receipt Date: 20150126
  Transmission Date: 20150721
  Serious: Yes (Hospitalization)
  Sender: FDA-Public Use
  Company Number: None

PATIENT
  Age: 45 Year
  Sex: Female
  Weight: 61.24 kg

DRUGS (1)
  1. TRAMADOL 50 MG [Suspect]
     Active Substance: TRAMADOL
     Indication: CHONDROMALACIA
     Dosage: 2 PILLS TWICE DIALY TAKEN BY MOUTH
     Route: 048
     Dates: start: 20150123, end: 20150124

REACTIONS (1)
  - Generalised tonic-clonic seizure [None]

NARRATIVE: CASE EVENT DATE: 20150124
